FAERS Safety Report 14108339 (Version 1)
Quarter: 2017Q4

REPORT INFORMATION
  Report Type: Spontaneous
  Country: DE (occurrence: DE)
  Receive Date: 20171019
  Receipt Date: 20171019
  Transmission Date: 20180321
  Serious: Yes (Hospitalization, Other)
  Sender: FDA-Public Use
  Company Number: DE-JNJFOC-20171016507

PATIENT
  Age: 71 Year
  Sex: Female

DRUGS (1)
  1. XARELTO [Suspect]
     Active Substance: RIVAROXABAN
     Indication: ATRIAL FIBRILLATION
     Route: 048
     Dates: start: 20170814, end: 201709

REACTIONS (11)
  - Decreased appetite [Unknown]
  - Pain of skin [Unknown]
  - Sleep disorder [Unknown]
  - Oedema [Unknown]
  - Urinary hesitation [Unknown]
  - Skin texture abnormal [Unknown]
  - Nausea [Unknown]
  - Renal failure [Unknown]
  - Faeces hard [Unknown]
  - Weight increased [Unknown]
  - Erythema [Unknown]

NARRATIVE: CASE EVENT DATE: 2017
